FAERS Safety Report 5846987-1 (Version None)
Quarter: 2008Q3

REPORT INFORMATION
  Report Type: 
  Country: None (occurrence: None)
  Receive Date: 20080815
  Receipt Date: 20080806
  Transmission Date: 20090109
  Serious: No
  Sender: FDA-Public Use
  Company Number: US-ELI_LILLY_AND_COMPANY-US200807003219

PATIENT
  Sex: Female

DRUGS (3)
  1. ZYPREXA [Suspect]
     Indication: SCHIZOPHRENIA
     Dosage: 50 MG, UNK
     Dates: start: 20080709
  2. ZYPREXA [Suspect]
     Dosage: UNK, UNK
     Dates: start: 20080601, end: 20080709
  3. HALDOL [Concomitant]

REACTIONS (4)
  - OVERDOSE [None]
  - PARAESTHESIA [None]
  - POLYMENORRHOEA [None]
  - RESTLESSNESS [None]
